FAERS Safety Report 5204141-0 (Version None)
Quarter: 2007Q1

REPORT INFORMATION
  Report Type: 
  Country: None (occurrence: None)
  Receive Date: 20070110
  Receipt Date: 20051214
  Transmission Date: 20070707
  Serious: No
  Sender: FDA-Public Use
  Company Number: US-BRISTOL-MYERS SQUIBB COMPANY-13215140

PATIENT
  Age: 11 Year
  Sex: Male
  Weight: 50 kg

DRUGS (3)
  1. ABILIFY [Suspect]
     Dosage: ABILIFY: STARTED 5MG QD ON 11/18/04; 7.5MG QD ON 3/02/05; 5MG BID ON 04/04/04 ; 10MG BID ON 11/03/05
     Dates: start: 20051103
  2. CLOMIPRAMINE HCL [Concomitant]
  3. METADATE CD [Concomitant]

REACTIONS (2)
  - EXTRAPYRAMIDAL DISORDER [None]
  - SELF INJURIOUS BEHAVIOUR [None]
